FAERS Safety Report 10558063 (Version 1)
Quarter: 2014Q4

REPORT INFORMATION
  Report Type: Spontaneous
  Country: US (occurrence: None)
  Receive Date: 20141030
  Receipt Date: 20141030
  Transmission Date: 20150529
  Serious: Yes (Hospitalization)
  Sender: FDA-Public Use
  Company Number: None

PATIENT
  Age: 46 Year
  Sex: Male

DRUGS (1)
  1. AMITRIPTYLINE [Suspect]
     Active Substance: AMITRIPTYLINE
     Indication: DEPRESSION
     Route: 048
     Dates: start: 20140717

REACTIONS (5)
  - Dizziness [None]
  - Syncope [None]
  - Dysarthria [None]
  - Disorientation [None]
  - Confusional state [None]

NARRATIVE: CASE EVENT DATE: 20140916
